FAERS Safety Report 6284901-8 (Version None)
Quarter: 2009Q3

REPORT INFORMATION
  Report Type: 
  Country: None (occurrence: None)
  Receive Date: 20090723
  Receipt Date: 20090709
  Transmission Date: 20100115
  Serious: Yes (Other)
  Sender: FDA-Public Use
  Company Number: DSJ-2009-07474

PATIENT
  Age: 91 Year
  Sex: Female

DRUGS (3)
  1. OLMESARTAN MEDOXOMIL [Suspect]
     Indication: DRUG USE FOR UNKNOWN INDICATION
     Dosage: 20 MG,PER ORAL
     Route: 048
     Dates: start: 20061003, end: 20090604
  2. WARFARIN SODIUM [Suspect]
     Indication: DRUG USE FOR UNKNOWN INDICATION
     Dosage: 1.75 MG
     Dates: start: 20071128, end: 20090604
  3. AMARYL [Suspect]
     Indication: DRUG USE FOR UNKNOWN INDICATION
     Dosage: 1 MG
     Dates: start: 20060801, end: 20090528

REACTIONS (2)
  - BLOOD GLUCOSE INCREASED [None]
  - HYPOGLYCAEMIA [None]
